FAERS Safety Report 7550419-5 (Version None)
Quarter: 2011Q2

REPORT INFORMATION
  Report Type: 
  Country: None (occurrence: None)
  Receive Date: 20110615
  Receipt Date: 20110610
  Transmission Date: 20111010
  Serious: Yes (Death)
  Sender: FDA-Public Use
  Company Number: SA-GENENTECH-304299

PATIENT
  Age: 65 Day
  Sex: Male
  Weight: 1.2 kg

DRUGS (3)
  1. HEPARIN [Concomitant]
     Indication: INTRACARDIAC THROMBUS
  2. HEPARIN [Concomitant]
     Indication: THROMBOSIS
  3. ACTIVASE [Suspect]
     Indication: PROPHYLAXIS
     Dosage: 0.6 MG/KG, CONTINUOUS
     Route: 042

REACTIONS (1)
  - HAEMORRHAGE [None]
